FAERS Safety Report 12816748 (Version 1)
Quarter: 2016Q4

REPORT INFORMATION
  Report Type: Spontaneous
  Country: US (occurrence: US)
  Receive Date: 20161005
  Receipt Date: 20161005
  Transmission Date: 20170207
  Serious: Yes (Other)
  Sender: FDA-Public Use
  Company Number: None

PATIENT
  Age: 61 Year
  Sex: Female
  Weight: 67.5 kg

DRUGS (9)
  1. OTEZLA [Suspect]
     Active Substance: APREMILAST
     Indication: PSORIASIS
     Route: 048
  2. CLOBETASOL [Concomitant]
     Active Substance: CLOBETASOL
  3. CALCIPOTRIENE. [Concomitant]
     Active Substance: CALCIPOTRIENE
  4. CALCIUM [Concomitant]
     Active Substance: CALCIUM
  5. VITAMIN D3 [Concomitant]
     Active Substance: CHOLECALCIFEROL
  6. DESONIDE. [Concomitant]
     Active Substance: DESONIDE
  7. CITALOPRAM [Concomitant]
     Active Substance: CITALOPRAM HYDROBROMIDE
  8. IBOPROFREN [Concomitant]
  9. CALCIPOTRIENE + BETAMETHASONE DISPROPIONATE [Concomitant]

REACTIONS (5)
  - Rash [None]
  - Abdominal pain upper [None]
  - Drug ineffective [None]
  - Diarrhoea [None]
  - Skin papilloma [None]

NARRATIVE: CASE EVENT DATE: 20160712
